FAERS Safety Report 19183514 (Version 1)
Quarter: 2021Q2

REPORT INFORMATION
  Report Type: Spontaneous
  Country: US (occurrence: US)
  Receive Date: 20210425
  Receipt Date: 20210425
  Transmission Date: 20210717
  Serious: Yes (Hospitalization)
  Sender: FDA-Public Use
  Company Number: None

PATIENT
  Age: 67 Year
  Sex: Female
  Weight: 41.4 kg

DRUGS (7)
  1. ASPIRIN 81 MG TAB [Concomitant]
  2. LIPITOR 40 MG TAB [Concomitant]
  3. MULTIVITAMIN TAB [Concomitant]
  4. LASIX 20 MG TAB [Concomitant]
  5. VOTRIENT [Concomitant]
     Active Substance: PAZOPANIB HYDROCHLORIDE
     Dates: start: 20210204, end: 20210424
  6. VOTRIENT [Suspect]
     Active Substance: PAZOPANIB HYDROCHLORIDE
     Indication: SOFT TISSUE SARCOMA
     Route: 048
     Dates: start: 20210204, end: 20210424
  7. VITAMIN D3 TAB10MCG [Concomitant]

REACTIONS (1)
  - Diverticulitis [None]
